FAERS Safety Report 5602129-9 (Version None)
Quarter: 2008Q1

REPORT INFORMATION
  Report Type: 
  Country: None (occurrence: None)
  Receive Date: 20080125
  Receipt Date: 20080117
  Transmission Date: 20080703
  Serious: Yes (Other)
  Sender: FDA-Public Use
  Company Number: PHBS2007JP18490

PATIENT
  Age: 58 Year
  Sex: Female

DRUGS (8)
  1. ZOMETA [Suspect]
     Indication: METASTASES TO BONE
     Dosage: 4 MG, UNK
     Route: 042
     Dates: start: 20060629, end: 20071023
  2. PACLITAXEL [Concomitant]
  3. XELODA [Concomitant]
     Indication: METASTASES TO LIVER
     Dosage: 2400 MG/ DAY
     Route: 048
     Dates: start: 20070703, end: 20071225
  4. LASIX [Suspect]
     Dosage: 20 MG/DAY
     Route: 048
     Dates: start: 20051222
  5. DEPAS [Suspect]
     Dosage: 1 MG/DAY
     Route: 048
     Dates: start: 20051222
  6. CYANOCOBALAMIN [Concomitant]
     Route: 048
     Dates: start: 20051222
  7. ZANTAC [Suspect]
     Route: 048
     Dates: start: 20051222
  8. MAGLAX [Suspect]
     Route: 048
     Dates: start: 20051222

REACTIONS (16)
  - ALANINE AMINOTRANSFERASE INCREASED [None]
  - ASPARTATE AMINOTRANSFERASE INCREASED [None]
  - BLOOD ALKALINE PHOSPHATASE INCREASED [None]
  - DRY MOUTH [None]
  - DYSGEUSIA [None]
  - GAMMA-GLUTAMYLTRANSFERASE INCREASED [None]
  - GINGIVAL DISORDER [None]
  - METASTASES TO LIVER [None]
  - MOUTH HAEMORRHAGE [None]
  - OSTEOMYELITIS [None]
  - OSTEOSCLEROSIS [None]
  - PAIN [None]
  - PYREXIA [None]
  - SENSITIVITY OF TEETH [None]
  - STOMATITIS [None]
  - TOOTH DISORDER [None]
